APPROVED DRUG PRODUCT: KLOR-CON M20
Active Ingredient: POTASSIUM CHLORIDE
Strength: 20MEQ
Dosage Form/Route: TABLET, EXTENDED RELEASE;ORAL
Application: A074726 | Product #001 | TE Code: AB1
Applicant: UPSHER SMITH LABORATORIES LLC
Approved: Nov 20, 1998 | RLD: No | RS: Yes | Type: RX